FAERS Safety Report 7397138-6 (Version None)
Quarter: 2011Q2

REPORT INFORMATION
  Report Type: 
  Country: None (occurrence: None)
  Receive Date: 20110406
  Receipt Date: 20110210
  Transmission Date: 20111010
  Serious: Yes (Death)
  Sender: FDA-Public Use
  Company Number: B0700326A

PATIENT
  Age: 34 Year
  Sex: Female

DRUGS (2)
  1. DIGOXIN [Suspect]
     Indication: ATRIAL FIBRILLATION
     Route: 065
  2. LETAIRIS [Suspect]
     Route: 048
     Dates: start: 20100115, end: 20110110

REACTIONS (1)
  - TOXICITY TO VARIOUS AGENTS [None]
